FAERS Safety Report 9342674 (Version 1)
Quarter: 2013Q2

REPORT INFORMATION
  Report Type: Spontaneous
  Country: US (occurrence: None)
  Receive Date: 20130607
  Receipt Date: 20130607
  Transmission Date: 20140414
  Serious: Yes (Hospitalization)
  Sender: FDA-Public Use
  Company Number: AUR-APL-2013-04541

PATIENT
  Age: 30 Year
  Sex: Female
  Weight: 74 kg

DRUGS (8)
  1. LEVETIRACETAM (LEVETIRACETAM) [Suspect]
     Indication: EPILEPSY
     Dosage: 3000 MG (1500 MG, 2 IN 1 D), ORAL
     Route: 048
     Dates: start: 20070410, end: 2013
  2. LAMOTRIGINE (LAMOTRIGINE) [Suspect]
     Indication: EPILEPSY
     Dosage: 600 MG (200 MG, 3 IN 1 D), ORAL
     Route: 048
     Dates: start: 20081130, end: 2013
  3. POTIGA [Suspect]
     Indication: EPILEPSY
     Dosage: 1200 MG (400 MG, 3 IN 1 D), ORAL
     Route: 048
     Dates: start: 20130319, end: 20130329
  4. LORAZEPAM (LORAZEPAM) [Suspect]
     Indication: EPILEPSY
     Dosage: QHS (2 MG, 1 IN 1 D), ORAL
     Route: 048
     Dates: start: 20110920, end: 2013
  5. DIAZEPAM (DIAZEPAM) [Suspect]
     Indication: CONVULSION
     Route: 030
     Dates: start: 20121119
  6. PREGABALIN [Suspect]
     Indication: EPILEPSY
     Dosage: 600 MG (300 MG, 2 IN 1 D), ORAL
     Route: 048
     Dates: start: 20111214, end: 2013
  7. CLARITIN (LORATADINE) [Concomitant]
  8. MULTIVITAMIN (VIGRAN) [Concomitant]

REACTIONS (3)
  - Accidental overdose [None]
  - Toxicity to various agents [None]
  - Urinary tract infection [None]
